FAERS Safety Report 9358668 (Version 2)
Quarter: 2013Q3

REPORT INFORMATION
  Report Type: Spontaneous
  Country: US (occurrence: US)
  Receive Date: 20130620
  Receipt Date: 20130718
  Transmission Date: 20140515
  Serious: No
  Sender: FDA-Public Use
  Company Number: PHEH2013US012979

PATIENT
  Sex: Female

DRUGS (6)
  1. VALSARTAN + HCT [Suspect]
     Dosage: UNK (160/12.5MG), QD
     Route: 048
     Dates: end: 20130520
  2. CANDESARTAN SANDOZ [Suspect]
     Dosage: UNK (160/12.5MG), QD
     Route: 048
     Dates: start: 20130521
  3. LEVOTHYROXIN [Concomitant]
     Dosage: UNK UKN, UNK
  4. NEXIUM//ESOMEPRAZOLE SODIUM [Concomitant]
     Dosage: UNK UKN, UNK
  5. ASA [Concomitant]
     Dosage: UNK UKN, UNK
  6. ATORVASTATIN [Concomitant]
     Dosage: UNK UKN, UNK

REACTIONS (6)
  - Malaise [Unknown]
  - Dysstasia [Unknown]
  - Feeling abnormal [Unknown]
  - Asthenia [Unknown]
  - Dizziness [Unknown]
  - Drug ineffective [Unknown]
